FAERS Safety Report 6379886-X (Version None)
Quarter: 2009Q3

REPORT INFORMATION
  Report Type: 
  Country: None (occurrence: None)
  Receive Date: 20090922
  Receipt Date: 20090130
  Transmission Date: 20100115
  Serious: Yes (Hospitalization)
  Sender: FDA-Public Use
  Company Number: 56416

PATIENT
  Sex: Female

DRUGS (1)
  1. ADRIAMYCIN PFS [Suspect]

REACTIONS (3)
  - PYREXIA [None]
  - SKIN TOXICITY [None]
  - VASCULITIS [None]
